FAERS Safety Report 20562956 (Version 1)
Quarter: 2022Q1

REPORT INFORMATION
  Report Type: Report from Study
  Country: BR (occurrence: BR)
  Receive Date: 20220307
  Receipt Date: 20220307
  Transmission Date: 20220424
  Serious: Yes (Other)
  Sender: FDA-Public Use
  Company Number: BR-ABBVIE-22K-020-4303726-00

PATIENT
  Sex: Female
  Weight: 60 kg

DRUGS (6)
  1. RINVOQ [Suspect]
     Active Substance: UPADACITINIB
     Indication: Rheumatoid arthritis
     Route: 048
     Dates: start: 20210716
  2. RINVOQ [Suspect]
     Active Substance: UPADACITINIB
     Dosage: STOPPED TO TAKE THE VACCINE
     Route: 048
  3. METHOTREXATE [Concomitant]
     Active Substance: METHOTREXATE
     Indication: Rheumatoid arthritis
     Route: 048
     Dates: start: 20210716
  4. COVID-19 VACCINE [Concomitant]
     Indication: COVID-19 immunisation
     Dosage: FIRST DOSE
     Route: 030
  5. COVID-19 VACCINE [Concomitant]
     Dosage: SECOND DOSE
     Route: 030
     Dates: start: 2021, end: 2021
  6. COVID-19 VACCINE [Concomitant]
     Dosage: THIRD DOSE
     Route: 030

REACTIONS (5)
  - Metabolic surgery [Unknown]
  - Dizziness [Unknown]
  - Arthralgia [Unknown]
  - Pain in extremity [Unknown]
  - Headache [Unknown]
